FAERS Safety Report 6809449-0 (Version None)
Quarter: 2010Q2

REPORT INFORMATION
  Report Type: 
  Country: None (occurrence: None)
  Receive Date: 20100630
  Receipt Date: 20100628
  Transmission Date: 20101027
  Serious: Yes (Other)
  Sender: FDA-Public Use
  Company Number: MY-ROXANE LABORATORIES, INC.-2010-RO-00774RO

PATIENT
  Age: 52 Year
  Sex: Male

DRUGS (6)
  1. METHADONE [Suspect]
     Indication: DRUG DEPENDENCE
     Dosage: 20 MG
  2. METHADONE [Suspect]
     Dosage: 60 MG
  3. METHADONE [Suspect]
  4. NEVIRAPINE [Suspect]
     Indication: HIV TEST POSITIVE
  5. STAVUDINE [Suspect]
     Indication: HIV TEST POSITIVE
  6. LAMIVUDINE [Suspect]
     Indication: HIV TEST POSITIVE

REACTIONS (2)
  - HIV TEST POSITIVE [None]
  - WITHDRAWAL SYNDROME [None]
